FAERS Safety Report 8187353-6 (Version None)
Quarter: 2012Q1

REPORT INFORMATION
  Report Type: 
  Country: None (occurrence: None)
  Receive Date: 20120306
  Receipt Date: 20120224
  Transmission Date: 20120608
  Serious: Yes (Other)
  Sender: FDA-Public Use
  Company Number: US-JNJFOC-20120214038

PATIENT
  Sex: Male
  Weight: 74.84 kg

DRUGS (7)
  1. CYCLOBENZAPRINE [Concomitant]
     Indication: MYALGIA
     Route: 048
  2. KLONOPIN [Concomitant]
     Indication: ABNORMAL DREAMS
     Route: 048
     Dates: start: 19970101
  3. FLEXERIL [Concomitant]
     Indication: MYALGIA
     Route: 048
     Dates: start: 19970101
  4. DURAGESIC-100 [Suspect]
     Indication: NEURALGIA
     Dosage: THREE 100 UG/HR PATCHES
     Route: 062
     Dates: start: 20090101
  5. KLONOPIN [Concomitant]
     Indication: PANIC ATTACK
     Route: 048
     Dates: start: 19970101
  6. DURAGESIC-100 [Suspect]
     Indication: NEURALGIA
     Dosage: 1-2 PATCHES EVERY 3 DAYS
     Route: 062
     Dates: start: 20060101, end: 20090101
  7. KLONOPIN [Concomitant]
     Indication: POST-TRAUMATIC STRESS DISORDER
     Route: 048
     Dates: start: 19970101

REACTIONS (16)
  - PAINFUL RESPIRATION [None]
  - PRODUCT ADHESION ISSUE [None]
  - MYALGIA [None]
  - FATIGUE [None]
  - SKIN BURNING SENSATION [None]
  - PAIN [None]
  - PRODUCT QUALITY ISSUE [None]
  - HYPERHIDROSIS [None]
  - DYSARTHRIA [None]
  - WRONG TECHNIQUE IN DRUG USAGE PROCESS [None]
  - DRUG DOSE OMISSION [None]
  - COUGH [None]
  - THERAPEUTIC RESPONSE DECREASED [None]
  - DIAPHRAGMALGIA [None]
  - FEELING ABNORMAL [None]
  - MUSCLE SPASMS [None]
